FAERS Safety Report 12409421 (Version 1)
Quarter: 2016Q2

REPORT INFORMATION
  Report Type: Spontaneous
  Country: US (occurrence: US)
  Receive Date: 20160526
  Receipt Date: 20160526
  Transmission Date: 20160815
  Serious: No
  Sender: FDA-Public Use
  Company Number: US-ELI_LILLY_AND_COMPANY-US201605003755

PATIENT
  Age: 31 Year
  Sex: Female

DRUGS (1)
  1. HUMULIN N [Suspect]
     Active Substance: INSULIN HUMAN
     Indication: GESTATIONAL DIABETES
     Dosage: 20 U, QD
     Route: 065
     Dates: start: 20160321

REACTIONS (6)
  - Exposure during pregnancy [Unknown]
  - Nasopharyngitis [Unknown]
  - Abdominal pain [Unknown]
  - Drug dose omission [Unknown]
  - Blood glucose increased [Unknown]
  - Ear infection [Unknown]

NARRATIVE: CASE EVENT DATE: 20160321
